FAERS Safety Report 11260876 (Version 3)
Quarter: 2016Q3

REPORT INFORMATION
  Report Type: Spontaneous
  Country: JP (occurrence: JP)
  Receive Date: 20150710
  Receipt Date: 20160729
  Transmission Date: 20161109
  Serious: Yes (Other)
  Sender: FDA-Public Use
  Company Number: JP-GSKJP-JP2015JPN097814AA

PATIENT
  Sex: Male

DRUGS (17)
  1. MIRAPEX-LA [Concomitant]
     Dosage: 1.5 MG, QD
  2. DOPS OD [Concomitant]
     Active Substance: DROXIDOPA
  3. MAGNESIUM OXIDE. [Concomitant]
     Active Substance: MAGNESIUM OXIDE
  4. VOGLIBOSE OD [Concomitant]
     Active Substance: VOGLIBOSE
  5. REQUIP [Suspect]
     Active Substance: ROPINIROLE HYDROCHLORIDE
     Indication: PROGRESSIVE SUPRANUCLEAR PALSY
     Dosage: 8 MG, QD
     Route: 048
     Dates: start: 20150316
  6. NOURIAST [Concomitant]
     Active Substance: ISTRADEFYLLINE
  7. TAMSULOSIN HYDROCHLORIDE OD [Concomitant]
     Active Substance: TAMSULOSIN HYDROCHLORIDE
  8. ALLELOCK [Concomitant]
     Active Substance: OLOPATADINE HYDROCHLORIDE
  9. COMTAN [Concomitant]
     Active Substance: ENTACAPONE
  10. NEXIUM [Concomitant]
     Active Substance: ESOMEPRAZOLE MAGNESIUM
  11. PREDONINE [Concomitant]
     Active Substance: PREDNISOLONE\PREDNISOLONE ACETATE\PREDNISOLONE SODIUM SUCCINATE
  12. MENESIT [Concomitant]
     Active Substance: CARBIDOPA\LEVODOPA
  13. NICOTINAMIDE [Concomitant]
     Active Substance: NIACINAMIDE
  14. HUMALOG [Concomitant]
     Active Substance: INSULIN LISPRO
  15. BONALON [Concomitant]
     Active Substance: ALENDRONATE SODIUM
  16. MINOMYCIN [Concomitant]
     Active Substance: MINOCYCLINE HYDROCHLORIDE
  17. TENELIA [Concomitant]
     Active Substance: TENELIGLIPTIN

REACTIONS (1)
  - Sudden onset of sleep [Unknown]
